FAERS Safety Report 8536173-9 (Version None)
Quarter: 2012Q3

REPORT INFORMATION
  Report Type: 
  Country: None (occurrence: None)
  Receive Date: 20120725
  Receipt Date: 20120711
  Transmission Date: 20120928
  Serious: Yes (Hospitalization, Other)
  Sender: FDA-Public Use
  Company Number: GB-ELI_LILLY_AND_COMPANY-GB201001004006

PATIENT
  Age: 37 Year
  Sex: Female

DRUGS (2)
  1. ZYPREXA [Suspect]
     Dosage: 10 MG, QD
     Dates: start: 19990101
  2. ZYPREXA [Suspect]
     Dosage: 35 MG, UNK

REACTIONS (6)
  - OVERDOSE [None]
  - RENAL FAILURE [None]
  - SUICIDE ATTEMPT [None]
  - URINE ABNORMALITY [None]
  - MALAISE [None]
  - INTENTIONAL DRUG MISUSE [None]
